FAERS Safety Report 6416056-0 (Version None)
Quarter: 2009Q4

REPORT INFORMATION
  Report Type: 
  Country: None (occurrence: None)
  Receive Date: 20091027
  Receipt Date: 20091014
  Transmission Date: 20100525
  Serious: Yes (Life-Threatening, Hospitalization)
  Sender: FDA-Public Use
  Company Number: US-ELI_LILLY_AND_COMPANY-US200910003196

PATIENT
  Age: 64 Year
  Sex: Female

DRUGS (5)
  1. CYMBALTA [Suspect]
     Dosage: 90 MG, DAILY (1/D)
  2. DEPAKOTE [Concomitant]
  3. LOPRESSOR [Concomitant]
  4. ABILIFY [Concomitant]
  5. KLONOPIN [Concomitant]

REACTIONS (1)
  - SEPSIS [None]
